FAERS Safety Report 8271071-X (Version None)
Quarter: 2012Q2

REPORT INFORMATION
  Report Type: 
  Country: None (occurrence: None)
  Receive Date: 20120410
  Receipt Date: 20120402
  Transmission Date: 20120825
  Serious: Yes (Disabling)
  Sender: FDA-Public Use
  Company Number: US-BAYER-2012-032695

PATIENT
  Age: 45 Year
  Sex: Female

DRUGS (4)
  1. YAZ [Suspect]
     Dosage: UNK
     Dates: start: 20110401, end: 20110601
  2. YASMIN [Suspect]
     Dosage: UNK
     Dates: start: 20110401, end: 20110601
  3. DROSPIRENONE AND ETHINYL ESTRADIOL [Suspect]
     Dosage: UNK
     Dates: start: 20110401, end: 20110601
  4. DROSPIRENONE AND ETHINYL ESTRADIOL [Suspect]
     Dosage: UNK
     Route: 048
     Dates: start: 20110401, end: 20110601

REACTIONS (6)
  - EMBOLIC STROKE [None]
  - PAIN [None]
  - EMOTIONAL DISTRESS [None]
  - HEMIPARESIS [None]
  - APHASIA [None]
  - INJURY [None]
